FAERS Safety Report 24694585 (Version 1)
Quarter: 2024Q4

REPORT INFORMATION
  Report Type: Spontaneous
  Country: US (occurrence: US)
  Receive Date: 20241204
  Receipt Date: 20241204
  Transmission Date: 20250114
  Serious: No
  Sender: PACIRA
  Company Number: US-ORG100016242-2024000073

PATIENT
  Age: 79 Year
  Sex: Male

DRUGS (1)
  1. ZILRETTA [Suspect]
     Active Substance: TRIAMCINOLONE ACETONIDE
     Indication: Osteoarthritis
     Dosage: NOT PROVIDED, SINGLE DOSE KIT INJECTION
     Route: 014
     Dates: start: 20240228, end: 20240228

REACTIONS (7)
  - Feeling abnormal [Recovering/Resolving]
  - Mobility decreased [Recovering/Resolving]
  - Fatigue [Recovering/Resolving]
  - Decreased appetite [Recovering/Resolving]
  - Diarrhoea [Not Recovered/Not Resolved]
  - Gait inability [Unknown]
  - Arthralgia [Unknown]

NARRATIVE: CASE EVENT DATE: 20230803
